FAERS Safety Report 8385850-1 (Version None)
Quarter: 2012Q2

REPORT INFORMATION
  Report Type: 
  Country: None (occurrence: None)
  Receive Date: 20120523
  Receipt Date: 20120314
  Transmission Date: 20120825
  Serious: Yes (Other)
  Sender: FDA-Public Use
  Company Number: ADE 12-009

PATIENT

DRUGS (1)
  1. HEPARIN SODIUM [Suspect]
     Dosage: 6000 UNITS
     Dates: start: 20120313

REACTIONS (2)
  - COAGULATION TIME PROLONGED [None]
  - DRUG EFFECT PROLONGED [None]
